FAERS Safety Report 4505103-9 (Version None)
Quarter: 2004Q4

REPORT INFORMATION
  Report Type: 
  Country: None (occurrence: None)
  Receive Date: 20041119
  Receipt Date: 20041026
  Transmission Date: 20050328
  Serious: Yes (Hospitalization)
  Sender: FDA-Public Use
  Company Number: FR-ABBOTT-04P-056-0278875-00

PATIENT
  Age: 82 Year
  Sex: Female
  Weight: 75 kg

DRUGS (4)
  1. LIPANTHYL [Suspect]
     Indication: HYPERCHOLESTEROLAEMIA
     Route: 048
  2. NICERGOLINE [Concomitant]
     Indication: DRUG USE FOR UNKNOWN INDICATION
  3. BISOPROLOL FUMARATE AND HYDROCHLOROTHIAZIDE [Concomitant]
     Indication: DRUG USE FOR UNKNOWN INDICATION
     Dates: start: 20000101, end: 20040920
  4. LERCANIDIPINE HYDROCHLORIDE [Concomitant]
     Indication: DRUG USE FOR UNKNOWN INDICATION

REACTIONS (3)
  - ERYTHEMA [None]
  - PRURIGO [None]
  - PSORIASIS [None]
